FAERS Safety Report 7692726-1 (Version None)
Quarter: 2011Q3

REPORT INFORMATION
  Report Type: 
  Country: None (occurrence: None)
  Receive Date: 20110819
  Receipt Date: 20110815
  Transmission Date: 20111222
  Serious: No
  Sender: FDA-Public Use
  Company Number: US-PFIZER INC-2011188327

PATIENT
  Sex: Male
  Weight: 83.9 kg

DRUGS (3)
  1. ATENOLOL [Concomitant]
     Dosage: 25 MG, UNK
  2. LEVOTHYROXINE [Concomitant]
     Dosage: 50 UG, UNK
  3. SUTENT [Suspect]
     Dosage: 50 MG, 1 CAP DAILY FOR 4 WEEKS FOLLOWED BY 2 WEEKS OFF AS DIRECTED
     Route: 048

REACTIONS (3)
  - DIARRHOEA [None]
  - PAIN IN EXTREMITY [None]
  - FATIGUE [None]
